FAERS Safety Report 7318849-4 (Version None)
Quarter: 2011Q1

REPORT INFORMATION
  Report Type: 
  Country: None (occurrence: None)
  Receive Date: 20110216
  Receipt Date: 20110203
  Transmission Date: 20110831
  Serious: Yes (Other)
  Sender: FDA-Public Use
  Company Number: 2011000668

PATIENT
  Sex: Male

DRUGS (1)
  1. TARCEVA [Suspect]
     Indication: PRODUCT USED FOR UNKNOWN INDICATION
     Dosage: MG, ORAL
     Route: 048

REACTIONS (4)
  - EYELID FUNCTION DISORDER [None]
  - DRY EYE [None]
  - DEPOSIT EYE [None]
  - RASH [None]
